FAERS Safety Report 24883858 (Version 1)
Quarter: 2025Q1

REPORT INFORMATION
  Report Type: Spontaneous
  Country: FR (occurrence: FR)
  Receive Date: 20250124
  Receipt Date: 20250124
  Transmission Date: 20250409
  Serious: Yes (Hospitalization)
  Sender: PURDUE
  Company Number: FR-PURDUE-USA-2025-0314847

PATIENT
  Age: 52 Year
  Sex: Female

DRUGS (3)
  1. OXYCONTIN [Interacting]
     Active Substance: OXYCODONE HYDROCHLORIDE
     Indication: Pain
     Dosage: (2 DOSAGE FORM, DAILY) 1 TABLET MORNING AND EVENING
     Route: 048
     Dates: start: 2022
  2. OXYCODONE HYDROCHLORIDE [Interacting]
     Active Substance: OXYCODONE HYDROCHLORIDE
     Indication: Pain
     Dosage: 1 DOSAGE FORM, Q4H
     Route: 048
     Dates: start: 2022
  3. PREGABALIN [Interacting]
     Active Substance: PREGABALIN
     Indication: Pain
     Dosage: (300 MILLIGRAM, DAILY) 1 TABLET OF 200 MG + 1 TABLET OF 100 MG
     Route: 048
     Dates: start: 20241005, end: 20241011

REACTIONS (1)
  - Coma [Recovered/Resolved]

NARRATIVE: CASE EVENT DATE: 20241011
